FAERS Safety Report 20049822 (Version 1)
Quarter: 2021Q4

REPORT INFORMATION
  Report Type: Spontaneous
  Country: CA (occurrence: CA)
  Receive Date: 20211109
  Receipt Date: 20211109
  Transmission Date: 20220303
  Serious: Yes (Life-Threatening, Hospitalization, Other)
  Sender: FDA-Public Use
  Company Number: CA-TEVA-2021-CA-1973686

PATIENT
  Age: 4 Year
  Sex: Male
  Weight: 16 kg

DRUGS (36)
  1. FLUDARABINE [Suspect]
     Active Substance: FLUDARABINE PHOSPHATE
     Indication: Prophylaxis against transplant rejection
     Route: 042
  2. ALEMTUZUMAB [Suspect]
     Active Substance: ALEMTUZUMAB
     Indication: Prophylaxis against transplant rejection
     Route: 041
  3. BUSULFAN [Suspect]
     Active Substance: BUSULFAN
     Indication: Prophylaxis against transplant rejection
     Route: 041
  4. CHOLECALCIFEROL [Concomitant]
     Active Substance: CHOLECALCIFEROL
  5. ACETAMINOPHEN [Concomitant]
     Active Substance: ACETAMINOPHEN
  6. ACYCLOVIR [Concomitant]
     Active Substance: ACYCLOVIR
  7. AMLODIPINE [Concomitant]
     Active Substance: AMLODIPINE BESYLATE
  8. AMOXICILLIN [Concomitant]
     Active Substance: AMOXICILLIN
  9. AMPHOTERICIN B [Concomitant]
     Active Substance: AMPHOTERICIN B
  10. CALCIUM CARBONATE\CHOLECALCIFEROL [Concomitant]
     Active Substance: CALCIUM CARBONATE\CHOLECALCIFEROL
  11. CEFTAZIDIME [Concomitant]
     Active Substance: CEFTAZIDIME
  12. CETIRIZINE [Concomitant]
     Active Substance: CETIRIZINE HYDROCHLORIDE
  13. CLONIDINE [Concomitant]
     Active Substance: CLONIDINE
  14. CYCLOSPORINE [Concomitant]
     Active Substance: CYCLOSPORINE
  15. DEXAMETHASONE [Concomitant]
     Active Substance: DEXAMETHASONE
  16. DIMENHYDRINATE [Concomitant]
     Active Substance: DIMENHYDRINATE
  17. DIPHENHYDRAMINE [Concomitant]
     Active Substance: DIPHENHYDRAMINE
  18. DOCUSATE SODIUM [Concomitant]
     Active Substance: DOCUSATE SODIUM
  19. FAMOTIDINE [Concomitant]
     Active Substance: FAMOTIDINE
  20. FLUCONAZOLE [Concomitant]
     Active Substance: FLUCONAZOLE
  21. FOSCARNET SODIUM [Concomitant]
     Active Substance: FOSCARNET SODIUM
     Route: 042
  22. FUROSEMIDE [Concomitant]
     Active Substance: FUROSEMIDE
  23. GABAPENTIN [Concomitant]
     Active Substance: GABAPENTIN
  24. GANCICLOVIR [Concomitant]
     Active Substance: GANCICLOVIR
  25. HYDROCORTISONE [Concomitant]
     Active Substance: HYDROCORTISONE
  26. HYDROXYZINE [Concomitant]
     Active Substance: HYDROXYZINE HYDROCHLORIDE
  27. LEVETIRACETAM [Concomitant]
     Active Substance: LEVETIRACETAM
     Route: 065
  28. LORAZEPAM [Concomitant]
     Active Substance: LORAZEPAM
  29. MAGNESIUM [Concomitant]
     Active Substance: MAGNESIUM
  30. METHYLPREDNISOLONE [Concomitant]
     Active Substance: METHYLPREDNISOLONE
  31. MYCOPHENOLATE MOFETIL [Concomitant]
     Active Substance: MYCOPHENOLATE MOFETIL
  32. ONDANSETRON [Concomitant]
     Active Substance: ONDANSETRON
  33. PIPERACILLIN SODIUM\TAZOBACTAM SODIUM [Concomitant]
     Active Substance: PIPERACILLIN SODIUM\TAZOBACTAM SODIUM
  34. POLYETHYLENE GLYCOL [Concomitant]
     Active Substance: POLYETHYLENE GLYCOL
  35. URSODIOL [Concomitant]
     Active Substance: URSODIOL
  36. VANCOMYCIN [Concomitant]
     Active Substance: VANCOMYCIN

REACTIONS (2)
  - Aplastic anaemia [Recovered/Resolved]
  - Stomatitis [Recovered/Resolved]
